FAERS Safety Report 21609389 (Version 3)
Quarter: 2023Q1

REPORT INFORMATION
  Report Type: Spontaneous
  Country: JP (occurrence: JP)
  Receive Date: 20221117
  Receipt Date: 20230106
  Transmission Date: 20230417
  Serious: Yes (Death, Life-Threatening, Other)
  Sender: FDA-Public Use
  Company Number: JP-OTSUKA-2022_051001

PATIENT
  Sex: Male

DRUGS (1)
  1. SAMSCA [Suspect]
     Active Substance: TOLVAPTAN
     Indication: Oedema due to cardiac disease
     Dosage: UNK
     Route: 048

REACTIONS (4)
  - Dyspnoea exertional [Fatal]
  - Condition aggravated [Fatal]
  - Neoplasm malignant [Unknown]
  - Dysphagia [Unknown]
